FAERS Safety Report 24890604 (Version 1)
Quarter: 2025Q1

REPORT INFORMATION
  Report Type: Spontaneous
  Country: US (occurrence: None)
  Receive Date: 20250126
  Receipt Date: 20250126
  Transmission Date: 20250409
  Serious: No
  Sender: FDA-CTU
  Company Number: None

PATIENT
  Age: 58 Year
  Sex: Female
  Weight: 60.75 kg

DRUGS (5)
  1. ROSUVASTATIN CALCIUM [Suspect]
     Active Substance: ROSUVASTATIN CALCIUM
     Indication: Blood cholesterol increased
     Dosage: 30 TABLETS DAILY ORAL ?
     Route: 048
     Dates: start: 20250109, end: 20250124
  2. ALBUTEROL [Concomitant]
     Active Substance: ALBUTEROL
  3. BUPROPION [Concomitant]
     Active Substance: BUPROPION
  4. VITAMIN B12 [Concomitant]
     Active Substance: CYANOCOBALAMIN
  5. VITAMIN D3 [Concomitant]
     Active Substance: CHOLECALCIFEROL

REACTIONS (4)
  - Nausea [None]
  - Abdominal pain upper [None]
  - Pruritus [None]
  - Oral pruritus [None]

NARRATIVE: CASE EVENT DATE: 20250124
